FAERS Safety Report 5007636-8 (Version None)
Quarter: 2006Q2

REPORT INFORMATION
  Report Type: 
  Country: None (occurrence: None)
  Receive Date: 20060518
  Receipt Date: 20060503
  Transmission Date: 20061013
  Serious: Yes (Death)
  Sender: FDA-Public Use
  Company Number: 200605IM000271

PATIENT
  Age: 38 Year
  Sex: Male

DRUGS (9)
  1. ACTIMMUNE [Suspect]
     Indication: ADENOCARCINOMA PANCREAS
     Dosage: SEE IMAGE, INTRA-ARTERIAL
     Route: 013
     Dates: start: 19940301
  2. PROLEUKIN [Concomitant]
  3. LIPIODOL [Concomitant]
  4. UROGRAPHIN 58% [Concomitant]
  5. MITOMYCIN [Concomitant]
  6. CARBOPLATIN [Concomitant]
  7. EPIRUBICIN [Concomitant]
  8. FLUOROURACIL [Concomitant]
  9. LEUCOVORIN [Concomitant]

REACTIONS (2)
  - METASTASES TO LIVER [None]
  - PANCREATIC CARCINOMA RECURRENT [None]
